FAERS Safety Report 8104454-9 (Version None)
Quarter: 2012Q1

REPORT INFORMATION
  Report Type: 
  Country: None (occurrence: None)
  Receive Date: 20120201
  Receipt Date: 20120125
  Transmission Date: 20120608
  Serious: Yes (Other)
  Sender: FDA-Public Use
  Company Number: PHHY2012SA001955

PATIENT

DRUGS (7)
  1. DEXAMETHASONE [Concomitant]
  2. DIPHENHYDRAMINE HCL [Concomitant]
  3. BEVACIZUMAB [Suspect]
     Indication: NON-SMALL CELL LUNG CANCER
     Dates: start: 20090210
  4. RANITIDINE [Concomitant]
  5. PACLITAXEL [Suspect]
     Indication: NON-SMALL CELL LUNG CANCER
     Dates: start: 20090210
  6. CARBOPLATIN [Suspect]
     Indication: NON-SMALL CELL LUNG CANCER
     Dosage: 600 MG, UNK
     Dates: start: 20090210
  7. GRANISETRON [Concomitant]

REACTIONS (1)
  - SINUS BRADYCARDIA [None]
